FAERS Safety Report 14832173 (Version 1)
Quarter: 2018Q2

REPORT INFORMATION
  Report Type: Spontaneous
  Country: SE (occurrence: SE)
  Receive Date: 20180501
  Receipt Date: 20180501
  Transmission Date: 20180711
  Serious: Yes (Other)
  Sender: FDA-Public Use
  Company Number: SE-EDENBRIDGE PHARMACEUTICALS, LLC-SE-2018EDE000097

PATIENT
  Age: 14 Year
  Sex: Male

DRUGS (2)
  1. IVERMECTIN. [Suspect]
     Active Substance: IVERMECTIN
     Indication: ACARODERMATITIS
     Dosage: 1 DF, QD
  2. ESDEPALLETHRINE W/PIPERONYL BUTOXIDE [Suspect]
     Active Substance: PIPERONYL BUTOXIDE\S-BIOALLETHRIN
     Indication: PRODUCT USED FOR UNKNOWN INDICATION
     Dosage: UNK
     Route: 061

REACTIONS (5)
  - Tremor [Recovered/Resolved]
  - Chills [Recovered/Resolved]
  - Dizziness [Recovered/Resolved]
  - Monoparesis [Recovered/Resolved]
  - Crying [Recovered/Resolved]
